FAERS Safety Report 9996445 (Version 2)
Quarter: 2014Q1

REPORT INFORMATION
  Report Type: Spontaneous
  Country: JP (occurrence: JP)
  Receive Date: 20140311
  Receipt Date: 20140311
  Transmission Date: 20141002
  Serious: Yes (Other)
  Sender: FDA-Public Use
  Company Number: JP-ELI_LILLY_AND_COMPANY-JP201306001530

PATIENT
  Age: 77 Year
  Sex: Male

DRUGS (2)
  1. GEMZAR [Suspect]
     Indication: GALLBLADDER CANCER
     Route: 042
  2. GEMZAR [Suspect]
     Indication: PANCREATIC CARCINOMA

REACTIONS (2)
  - Scleroderma [Recovered/Resolved]
  - Anaemia [Unknown]
